FAERS Safety Report 8451816 (Version 2)
Quarter: 2013Q2

REPORT INFORMATION
  Report Type: Spontaneous
  Country: US (occurrence: None)
  Receive Date: 20120213
  Receipt Date: 20130313
  Transmission Date: 20140414
  Serious: Yes (Other)
  Sender: FDA-Public Use
  Company Number: 1000026713

PATIENT
  Age: 60 Year
  Sex: Female

DRUGS (4)
  1. SAVELLA [Suspect]
     Indication: FIBROMYALGIA
     Route: 048
     Dates: start: 2010, end: 2010
  2. AMITRIPTYLINE (AMITRIPTYLINE) (AMITRIPTYLINE) [Concomitant]
  3. TRAZODONE (TRAZODONE) (TRAZODONE) [Concomitant]
  4. TEMAZEPAM (TEMAZEPAM) (TEMAZEPAM) [Concomitant]

REACTIONS (2)
  - SUICIDAL IDEATION [None]
  - MEMORY IMPAIRMENT [None]
